FAERS Safety Report 20673515 (Version 2)
Quarter: 2022Q2

REPORT INFORMATION
  Report Type: Spontaneous
  Country: JP (occurrence: JP)
  Receive Date: 20220405
  Receipt Date: 20220525
  Transmission Date: 20220721
  Serious: No
  Sender: FDA-Public Use
  Company Number: JP-GSKNCCC-Case-01458646_AE-56519

PATIENT

DRUGS (6)
  1. SOTROVIMAB [Suspect]
     Active Substance: SOTROVIMAB
     Indication: COVID-19
     Dosage: 500 MG, SINGLE
     Dates: start: 20220301, end: 20220301
  2. CALONAL [Concomitant]
     Active Substance: ACETAMINOPHEN
     Indication: COVID-19
     Dosage: 400 MG, AS NEEDED WHEN PYREXIA OCCURRED
     Dates: start: 20220302
  3. CALONAL [Concomitant]
     Active Substance: ACETAMINOPHEN
     Indication: Pyrexia
  4. METGLUCO TABLETS [Concomitant]
     Indication: Type 1 diabetes mellitus
     Dosage: 500 MG, BID
     Dates: start: 2012
  5. NOVORAPID [Concomitant]
     Active Substance: INSULIN ASPART
     Indication: Type 1 diabetes mellitus
     Dosage: 6 UNITS IN THE MORNING AND EVENING EACH
     Dates: start: 2012
  6. INSULIN GLARGINE BS INJECTION [Concomitant]
     Indication: Type 1 diabetes mellitus
     Dosage: 4 UNITS IN THE EVENING
     Dates: start: 202109

REACTIONS (1)
  - Diarrhoea [Recovering/Resolving]

NARRATIVE: CASE EVENT DATE: 20220302
